FAERS Safety Report 25194196 (Version 4)
Quarter: 2025Q2

REPORT INFORMATION
  Report Type: Report from Study
  Country: US (occurrence: US)
  Receive Date: 20250414
  Receipt Date: 20250626
  Transmission Date: 20250717
  Serious: Yes (Other)
  Sender: ABBVIE
  Company Number: US-ABBVIE-6216415

PATIENT
  Age: 63 Year
  Sex: Female
  Weight: 88 kg

DRUGS (2)
  1. RINVOQ [Suspect]
     Active Substance: UPADACITINIB
     Indication: Rheumatoid arthritis
     Dosage: FORM STRENGTH: 15 MILLIGRAM
     Route: 048
     Dates: start: 20240224, end: 20250307
  2. RINVOQ [Suspect]
     Active Substance: UPADACITINIB
     Indication: Rheumatoid arthritis
     Dosage: FORM STRENGTH: 15 MILLIGRAM
     Route: 048
     Dates: start: 20250408

REACTIONS (3)
  - Knee arthroplasty [Recovering/Resolving]
  - Rheumatoid arthritis [Recovering/Resolving]
  - Bursitis [Recovering/Resolving]

NARRATIVE: CASE EVENT DATE: 20250101
